FAERS Safety Report 8906904 (Version 1)
Quarter: 2012Q4

REPORT INFORMATION
  Report Type: 
  Country: BR (occurrence: BR)
  Receive Date: 20121114
  Receipt Date: 20121114
  Transmission Date: 20130627
  Serious: Yes (Other)
  Sender: FDA-Public Use
  Company Number: BR-PFIZER INC-2012278559

PATIENT
  Age: 49 Year
  Sex: Female
  Weight: 76 kg

DRUGS (6)
  1. DEPO-PROVERA [Suspect]
     Dosage: UNK
  2. CERAZETTE [Suspect]
     Indication: ENDOMETRIOSIS
     Dosage: 1 tablet (75mg) a day
     Route: 048
     Dates: start: 201204
  3. ALPRAZOLAM [Concomitant]
     Indication: SEDATIVE THERAPY
     Dosage: 5 mg, UNK
     Dates: start: 2012
  4. ASPIRINE [Concomitant]
     Indication: HEADACHE
     Dosage: UNK
  5. HYDROCHLOROTHIAZIDE [Concomitant]
     Indication: BLOOD PRESSURE INCREASED
     Dosage: 25 mg, UNK
     Dates: start: 1986
  6. PROPANOLOL [Concomitant]
     Indication: BLOOD PRESSURE INCREASED
     Dosage: 50 mg, UNK
     Dates: start: 1986

REACTIONS (4)
  - Diabetes mellitus [Not Recovered/Not Resolved]
  - Mental disorder [Unknown]
  - Feeling abnormal [Unknown]
  - Weight decreased [Unknown]
